FAERS Safety Report 9620903 (Version 2)
Quarter: 2013Q4

REPORT INFORMATION
  Report Type: Spontaneous
  Country: JP (occurrence: JP)
  Receive Date: 20131015
  Receipt Date: 20131113
  Transmission Date: 20140711
  Serious: Yes (Other)
  Sender: FDA-Public Use
  Company Number: JP-JNJFOC-20131002998

PATIENT
  Sex: 0

DRUGS (4)
  1. DUROTEP MT PATCH [Suspect]
     Indication: PROCEDURAL PAIN
     Route: 062
  2. FENTANYL CITRATE [Suspect]
     Indication: PROCEDURAL PAIN
     Route: 014
  3. EPINEPHRINE [Concomitant]
     Route: 014
  4. ROPIVACAINE [Concomitant]
     Route: 014

REACTIONS (2)
  - Delirium [Recovered/Resolved]
  - Off label use [Unknown]
